FAERS Safety Report 25566729 (Version 1)
Quarter: 2025Q3

REPORT INFORMATION
  Report Type: Spontaneous
  Country: US (occurrence: US)
  Receive Date: 20250716
  Receipt Date: 20250716
  Transmission Date: 20251020
  Serious: Yes (Hospitalization)
  Sender: DAIICHI
  Company Number: US-DSJP-DS-2025-139110-US

PATIENT
  Age: 52 Year
  Sex: Female
  Weight: 48 kg

DRUGS (4)
  1. ENHERTU [Suspect]
     Active Substance: FAM-TRASTUZUMAB DERUXTECAN-NXKI
     Indication: Neoplasm
     Route: 042
     Dates: start: 20250331, end: 20250331
  2. PERZEBERTINIB SESQUIFUMARATE [Suspect]
     Active Substance: PERZEBERTINIB SESQUIFUMARATE
     Indication: Neoplasm
     Dosage: 400 MG, BID
     Route: 048
     Dates: start: 20250331, end: 20250409
  3. SUCRALFATE [Concomitant]
     Active Substance: SUCRALFATE
     Indication: Product used for unknown indication
     Route: 065
     Dates: start: 20250414
  4. PROTIX [Concomitant]
     Indication: Product used for unknown indication
     Route: 065
     Dates: start: 20250414

REACTIONS (1)
  - Upper gastrointestinal haemorrhage [Recovered/Resolved]

NARRATIVE: CASE EVENT DATE: 20250409
